FAERS Safety Report 7376884-4 (Version None)
Quarter: 2011Q1

REPORT INFORMATION
  Report Type: 
  Country: None (occurrence: None)
  Receive Date: 20110327
  Receipt Date: 20110315
  Transmission Date: 20110831
  Serious: Yes (Death)
  Sender: FDA-Public Use
  Company Number: IT-CELGENEUS-083-21880-11031874

PATIENT
  Sex: Male

DRUGS (3)
  1. MORPHINE [Concomitant]
     Indication: PAIN
     Route: 048
     Dates: start: 20101201
  2. PARACETAMOL [Concomitant]
     Indication: PAIN
     Route: 051
     Dates: start: 20101201
  3. REVLIMID [Suspect]
     Indication: DIFFUSE LARGE B-CELL LYMPHOMA
     Dosage: 25 MILLIGRAM
     Route: 048
     Dates: start: 20100916, end: 20101103

REACTIONS (1)
  - DIFFUSE LARGE B-CELL LYMPHOMA [None]
